FAERS Safety Report 13652616 (Version 1)
Quarter: 2017Q2

REPORT INFORMATION
  Report Type: Spontaneous
  Country: US (occurrence: US)
  Receive Date: 20170614
  Receipt Date: 20170614
  Transmission Date: 20170830
  Serious: No
  Sender: FDA-Public Use
  Company Number: US-ROCHE-1341760

PATIENT
  Sex: Male

DRUGS (10)
  1. ALLOPURINOL. [Concomitant]
     Active Substance: ALLOPURINOL
     Route: 065
  2. ASPIRIN. [Concomitant]
     Active Substance: ASPIRIN
  3. AMOXICILLIN. [Concomitant]
     Active Substance: AMOXICILLIN
  4. IMODIUM [Concomitant]
     Active Substance: LOPERAMIDE HYDROCHLORIDE
  5. CLOPIDOGREL [Concomitant]
     Active Substance: CLOPIDOGREL BISULFATE
  6. NITROQUICK [Concomitant]
     Active Substance: NITROGLYCERIN
  7. PROCHLORPERAZINE. [Concomitant]
     Active Substance: PROCHLORPERAZINE
  8. XELODA [Suspect]
     Active Substance: CAPECITABINE
     Dosage: AT PM
     Route: 048
     Dates: start: 20140115
  9. XELODA [Suspect]
     Active Substance: CAPECITABINE
     Indication: RECTOSIGMOID CANCER
     Dosage: AT AM
     Route: 048
     Dates: start: 20140115
  10. COENZYME Q-10 [Concomitant]

REACTIONS (3)
  - Asthenia [Unknown]
  - Depressed mood [Unknown]
  - Stomatitis [Recovered/Resolved]
